FAERS Safety Report 8376684-2 (Version None)
Quarter: 2012Q2

REPORT INFORMATION
  Report Type: 
  Country: None (occurrence: None)
  Receive Date: 20120518
  Receipt Date: 20120508
  Transmission Date: 20120825
  Serious: Yes (Death)
  Sender: FDA-Public Use
  Company Number: DKLU1080234

PATIENT
  Age: 13 Year
  Sex: Male

DRUGS (6)
  1. TOPIRAMATE [Concomitant]
  2. CARBAMAZEPINE [Concomitant]
  3. NEURONTIN [Concomitant]
  4. SABRIL [Suspect]
     Indication: COMPLEX PARTIAL SEIZURES
     Dosage: 1000 MG MILLIGRAM(S), 2 IN 1 D, ORAL
     Route: 048
     Dates: start: 20100527
  5. VALPROIC ACID [Concomitant]
  6. LEVETIRACETAM [Concomitant]

REACTIONS (1)
  - DEATH [None]
